FAERS Safety Report 6189443-6 (Version None)
Quarter: 2009Q2

REPORT INFORMATION
  Report Type: 
  Country: None (occurrence: None)
  Receive Date: 20090512
  Receipt Date: 20090512
  Transmission Date: 20091009
  Serious: Yes (Life-Threatening)
  Sender: FDA-Public Use
  Company Number: None

PATIENT
  Age: 61 Year
  Sex: Male
  Weight: 233.5 kg

DRUGS (2)
  1. NAPROXEN [Suspect]
     Indication: PAIN
     Dosage: 500MG TAB BID PO
     Route: 048
     Dates: start: 20090213, end: 20090401
  2. ASPIRIN [Suspect]
     Indication: HYPERTENSION
     Dosage: 325 MG EVERY DAY EYE
     Dates: start: 20080918

REACTIONS (2)
  - GASTRIC ULCER HAEMORRHAGE [None]
  - WOUND INFECTION [None]
